FAERS Safety Report 5214566-5 (Version None)
Quarter: 2007Q1

REPORT INFORMATION
  Report Type: 
  Country: None (occurrence: None)
  Receive Date: 20070122
  Receipt Date: 20070109
  Transmission Date: 20070707
  Serious: Yes (Hospitalization, Other)
  Sender: FDA-Public Use
  Company Number: PHBS2006NL16921

PATIENT
  Age: 2 Day
  Sex: Female
  Weight: 2.65 kg

DRUGS (5)
  1. TRILEPTAL [Suspect]
     Dosage: MATERNAL DOSE: 300 MG TID
     Route: 064
  2. DEPAKENE [Suspect]
     Dosage: MATERNAL DOSE: 50 MG BID
     Route: 064
  3. KEPPRA [Suspect]
     Dosage: MATERNAL DOSE: 750 MG BID
     Route: 064
  4. FOLIC ACID [Concomitant]
     Route: 064
  5. VITAMIN K [Concomitant]
     Dosage: USED BY MOTHER SINCE WEEK 36 OF PREGNANCY
     Route: 064

REACTIONS (32)
  - ALANINE AMINOTRANSFERASE INCREASED [None]
  - APGAR SCORE LOW [None]
  - ASPARTATE AMINOTRANSFERASE INCREASED [None]
  - BLOOD ALKALINE PHOSPHATASE INCREASED [None]
  - BLOOD BILIRUBIN INCREASED [None]
  - BLOOD CALCIUM DECREASED [None]
  - BLOOD CHLORIDE DECREASED [None]
  - BLOOD LACTATE DEHYDROGENASE INCREASED [None]
  - BLOOD POTASSIUM INCREASED [None]
  - BLOOD SODIUM DECREASED [None]
  - BLOOD UREA DECREASED [None]
  - C-REACTIVE PROTEIN INCREASED [None]
  - CYANOSIS [None]
  - DRUG EXPOSURE DURING PREGNANCY [None]
  - HAEMATOCHEZIA [None]
  - HAEMATOCRIT INCREASED [None]
  - HAEMOGLOBIN DECREASED [None]
  - HAEMOLYSIS [None]
  - HYPERTRIGLYCERIDAEMIA [None]
  - HYPERVISCOSITY SYNDROME [None]
  - HYPONATRAEMIA [None]
  - LEUKOCYTOSIS [None]
  - MALAISE [None]
  - MILK ALLERGY [None]
  - NAUSEA [None]
  - NECROTISING ENTEROCOLITIS NEONATAL [None]
  - PARENTERAL NUTRITION [None]
  - POLYCYTHAEMIA [None]
  - POSTMATURE BABY [None]
  - RESPIRATORY RATE INCREASED [None]
  - SMALL FOR DATES BABY [None]
  - VOMITING [None]
